FAERS Safety Report 8610189 (Version 4)
Quarter: 2014Q1

REPORT INFORMATION
  Report Type: Spontaneous
  Country: US (occurrence: US)
  Receive Date: 20120612
  Receipt Date: 20140228
  Transmission Date: 20141002
  Serious: Yes (Hospitalization, Disabling, Other)
  Sender: FDA-Public Use
  Company Number: US-PFIZER INC-2012136010

PATIENT
  Age: 76 Year
  Sex: Female
  Weight: 99.77 kg

DRUGS (3)
  1. CELEBREX [Suspect]
     Indication: ARTHRITIS
     Dosage: 150 MG, 1X/DAY
  2. EFFEXOR XR [Suspect]
     Indication: DEPRESSION
     Dosage: 75 MG, 1X/DAY
  3. PROTONIX [Suspect]
     Dosage: UNK

REACTIONS (5)
  - Arthropathy [Unknown]
  - Haemorrhage [Unknown]
  - Cardiac disorder [Unknown]
  - Conversion disorder [Unknown]
  - Pain [Unknown]
